FAERS Safety Report 12827000 (Version 8)
Quarter: 2016Q4

REPORT INFORMATION
  Report Type: Spontaneous
  Country: ES (occurrence: ES)
  Receive Date: 20161006
  Receipt Date: 20161027
  Transmission Date: 20170207
  Serious: Yes (Other)
  Sender: FDA-Public Use
  Company Number: PHHY2016ES137061

PATIENT
  Age: 22 Year
  Sex: Male

DRUGS (7)
  1. CICLOSPORIN [Suspect]
     Active Substance: CYCLOSPORINE
     Indication: GLAUCOMA SURGERY
     Dosage: 150 MG, UNK
     Route: 062
  2. TOBRAMYCIN AND DEXAMETHASONE [Suspect]
     Active Substance: DEXAMETHASONE\TOBRAMYCIN
     Indication: PRODUCT USED FOR UNKNOWN INDICATION
     Dosage: TOBRAMYCIN 3 MG/ML; DEXAMETHASONE 1 MG/ML
     Route: 061
  3. CIPROFLOXACIN. [Suspect]
     Active Substance: CIPROFLOXACIN
     Indication: PRODUCT USED FOR UNKNOWN INDICATION
     Dosage: 3 MG/ML, UNK
     Route: 061
  4. CICLOSPORIN [Suspect]
     Active Substance: CYCLOSPORINE
     Indication: IMMUNOSUPPRESSANT DRUG THERAPY
  5. MYCOPHENOLATE MOFETIL. [Suspect]
     Active Substance: MYCOPHENOLATE MOFETIL
     Indication: GLAUCOMA SURGERY
     Dosage: 1 G, UNK
     Route: 062
  6. PREDNISOLONE. [Suspect]
     Active Substance: PREDNISOLONE
     Indication: GLAUCOMA SURGERY
     Dosage: UNK
     Route: 048
  7. MYCOPHENOLATE MOFETIL. [Suspect]
     Active Substance: MYCOPHENOLATE MOFETIL
     Indication: IMMUNOSUPPRESSANT DRUG THERAPY

REACTIONS (3)
  - Eye disorder [Unknown]
  - Hypotony of eye [Recovered/Resolved]
  - Product use issue [Unknown]
